FAERS Safety Report 7516507-4 (Version None)
Quarter: 2011Q2

REPORT INFORMATION
  Report Type: 
  Country: None (occurrence: None)
  Receive Date: 20110601
  Receipt Date: 20110523
  Transmission Date: 20111010
  Serious: Yes (Other)
  Sender: FDA-Public Use
  Company Number: A0928572A

PATIENT
  Age: 60 Year
  Sex: Female

DRUGS (6)
  1. NOVOLOG [Concomitant]
  2. COREG [Concomitant]
  3. ASPIRIN [Concomitant]
  4. PRASUGREL [Concomitant]
  5. LOVAZA [Suspect]
     Dosage: 2G TWICE PER DAY
     Route: 048
     Dates: start: 20100501
  6. DIOVAN [Concomitant]

REACTIONS (6)
  - CHEST DISCOMFORT [None]
  - ASTHMA [None]
  - MUSCLE TIGHTNESS [None]
  - DYSPNOEA [None]
  - FOOD ALLERGY [None]
  - DIARRHOEA [None]
